FAERS Safety Report 16527935 (Version 6)
Quarter: 2020Q2

REPORT INFORMATION
  Report Type: Spontaneous
  Country: JP (occurrence: JP)
  Receive Date: 20190703
  Receipt Date: 20200526
  Transmission Date: 20200713
  Serious: Yes (Death, Life-Threatening, Hospitalization, Other)
  Sender: FDA-Public Use
  Company Number: JP-ELI_LILLY_AND_COMPANY-JP201905014672

PATIENT
  Age: 67 Year
  Sex: Female

DRUGS (16)
  1. METHOTREXATE. [Suspect]
     Active Substance: METHOTREXATE
     Dosage: 12 MG, WEEKLY (1/W)
     Route: 065
     Dates: start: 20120528, end: 20190610
  2. MUCODYNE [Concomitant]
     Active Substance: CARBOCYSTEINE
     Indication: CHRONIC SINUSITIS
     Dosage: 1500 MG, DAILY
     Dates: start: 20140703, end: 20190611
  3. METHOTREXATE. [Suspect]
     Active Substance: METHOTREXATE
     Dosage: 8 MG, WEEKLY (1/W)
     Route: 065
     Dates: start: 20120430, end: 20120521
  4. METHYCOBAL [Concomitant]
     Active Substance: METHYLCOBALAMIN
  5. CLARITH [Concomitant]
     Active Substance: CLARITHROMYCIN
     Indication: CHRONIC SINUSITIS
     Dosage: 200 MG, DAILY
     Dates: start: 20140703, end: 20190611
  6. OLUMIANT [Suspect]
     Active Substance: BARICITINIB
     Indication: RHEUMATOID ARTHRITIS
     Dosage: 4 MG, DAILY
     Route: 048
     Dates: start: 20190423
  7. METHOTREXATE. [Suspect]
     Active Substance: METHOTREXATE
     Indication: RHEUMATOID ARTHRITIS
     Dosage: 8 MG, WEEKLY (1/W)
     Route: 065
     Dates: start: 20120221, end: 20120423
  8. CELECOX [Concomitant]
     Active Substance: CELECOXIB
  9. SELBEX [Concomitant]
     Active Substance: TEPRENONE
  10. GASTER [Concomitant]
     Active Substance: FAMOTIDINE
  11. ISCOTIN [Concomitant]
     Active Substance: ISONIAZID
     Indication: PROPHYLAXIS
     Dosage: 300 MG, DAILY
     Dates: start: 20120525, end: 20190611
  12. PYDOXAL [Concomitant]
     Active Substance: PYRIDOXAL
  13. LYRICA [Concomitant]
     Active Substance: PREGABALIN
  14. FOLIAMIN [Concomitant]
     Active Substance: FOLIC ACID
  15. CARERAM [Suspect]
     Active Substance: IGURATIMOD
     Indication: PRODUCT USED FOR UNKNOWN INDICATION
     Dosage: UNK
     Route: 065
     Dates: start: 20180404, end: 20190610
  16. DENOTAS [Concomitant]
     Active Substance: CALCIUM CARBONATE\CHOLECALCIFEROL\MAGNESIUM CARBONATE

REACTIONS (3)
  - Disseminated intravascular coagulation [Recovering/Resolving]
  - Somnolence [Unknown]
  - Pneumocystis jirovecii pneumonia [Fatal]

NARRATIVE: CASE EVENT DATE: 20190424
